FAERS Safety Report 13117290 (Version 3)
Quarter: 2017Q1

REPORT INFORMATION
  Report Type: Spontaneous
  Country: KR (occurrence: KR)
  Receive Date: 20170116
  Receipt Date: 20170315
  Transmission Date: 20170428
  Serious: Yes (Other)
  Sender: FDA-Public Use
  Company Number: KR-009507513-1701KOR006214

PATIENT
  Age: 66 Year
  Sex: Male
  Weight: 54 kg

DRUGS (16)
  1. EMEND (FOSAPREPITANT DIMEGLUMINE) [Suspect]
     Active Substance: FOSAPREPITANT DIMEGLUMINE
     Indication: PROPHYLAXIS OF NAUSEA AND VOMITING
     Dosage: 150 MG, ONCE
     Route: 042
     Dates: start: 20160318, end: 20160318
  2. MANNITOL. [Concomitant]
     Active Substance: MANNITOL
     Indication: PROPHYLAXIS
     Dosage: CONCENTRATION: 15% 100ML
     Route: 042
     Dates: start: 20160318, end: 20160318
  3. ZIPAN (TRAMADOL HYDROCHLORIDE) [Concomitant]
     Indication: PAIN
     Dosage: CONCENTRATION: 100 MG/2ML
     Route: 042
     Dates: start: 20160318, end: 20160318
  4. EMEND (FOSAPREPITANT DIMEGLUMINE) [Suspect]
     Active Substance: FOSAPREPITANT DIMEGLUMINE
     Dosage: 150 MG, ONCE
     Route: 042
     Dates: start: 20160429, end: 20160429
  5. DEXAMETHASONE DAEWON [Concomitant]
     Indication: PROPHYLAXIS OF NAUSEA AND VOMITING
     Dosage: 10 MG, QD
     Route: 042
     Dates: start: 20160318, end: 20160318
  6. MATRIFEN [Concomitant]
     Active Substance: FENTANYL
     Indication: PAIN
     Dosage: CONCENTRATION: 25MCG/H 8.4CM2
     Route: 050
     Dates: start: 20160311
  7. EMEND (FOSAPREPITANT DIMEGLUMINE) [Suspect]
     Active Substance: FOSAPREPITANT DIMEGLUMINE
     Dosage: 150 MG, ONCE
     Route: 042
     Dates: start: 20160408, end: 20160408
  8. ALOXI [Concomitant]
     Active Substance: PALONOSETRON HYDROCHLORIDE
     Indication: PROPHYLAXIS OF NAUSEA AND VOMITING
     Dosage: UNK UNK, ONCE
     Route: 042
     Dates: start: 20160318, end: 20160318
  9. PARAMACET [Concomitant]
     Active Substance: ACETAMINOPHEN\TRAMADOL
     Indication: PAIN
     Dosage: 1 TABLET, TID
     Route: 048
     Dates: start: 20160311
  10. ULCERLMIN [Concomitant]
     Active Substance: SUCRALFATE
     Indication: PROPHYLAXIS AGAINST GASTROINTESTINAL ULCER
     Dosage: CONCENTRATION: 1 G/15ML
     Route: 048
     Dates: start: 20160311
  11. NAXEN F [Concomitant]
     Indication: PAIN
     Dosage: 1 TABLET, BID
     Route: 048
     Dates: start: 20160311
  12. EMEND (FOSAPREPITANT DIMEGLUMINE) [Suspect]
     Active Substance: FOSAPREPITANT DIMEGLUMINE
     Dosage: 150 MG, ONCE
     Route: 042
     Dates: start: 20160524, end: 20160524
  13. CISPLATIN. [Concomitant]
     Active Substance: CISPLATIN
     Indication: TONGUE NEOPLASM MALIGNANT STAGE UNSPECIFIED
     Dosage: 92.4 MG, ONCE, STRENGTH 50 MG/ 100 ML CYCLE 1
     Route: 042
     Dates: start: 20160318, end: 20160318
  14. CISPLATIN (+) GIMERACIL (+) OTERACIL POTASSIUM (+) TEGAFUR [Concomitant]
     Indication: TONGUE NEOPLASM MALIGNANT STAGE UNSPECIFIED
     Dosage: 3 DF, BID
     Route: 048
     Dates: start: 20160318
  15. MATRIFEN [Concomitant]
     Active Substance: FENTANYL
     Indication: PAIN
     Dosage: CONCENTRATION: 12MCG/H4.2CM2
     Route: 050
     Dates: start: 20160318
  16. LASIX [Concomitant]
     Active Substance: FUROSEMIDE
     Indication: PROPHYLAXIS
     Dosage: CONCENTRATION: 20MG/2ML
     Route: 042
     Dates: start: 20160318, end: 20160318

REACTIONS (3)
  - Acute kidney injury [Recovered/Resolved]
  - Anaemia [Recovering/Resolving]
  - Abdominal pain [Recovered/Resolved]

NARRATIVE: CASE EVENT DATE: 201603
